FAERS Safety Report 8867467 (Version 1)
Quarter: 2012Q4

REPORT INFORMATION
  Report Type: 
  Country: US (occurrence: US)
  Receive Date: 20121025
  Receipt Date: 20121025
  Transmission Date: 20130627
  Serious: No
  Sender: FDA-Public Use
  Company Number: US-AMGEN-USASP2012016887

PATIENT
  Sex: Female

DRUGS (2)
  1. ENBREL [Suspect]
     Indication: PSORIASIS
     Dates: start: 20110526, end: 20120207
  2. HUMIRA [Concomitant]
     Dosage: UNK

REACTIONS (2)
  - Dizziness [Unknown]
  - Drug ineffective [Not Recovered/Not Resolved]
